FAERS Safety Report 22144762 (Version 1)
Quarter: 2023Q1

REPORT INFORMATION
  Report Type: Spontaneous
  Country: US (occurrence: US)
  Receive Date: 20230328
  Receipt Date: 20230328
  Transmission Date: 20230418
  Serious: Yes (Death)
  Sender: FDA-Public Use
  Company Number: US-JNJFOC-20230361454

PATIENT
  Sex: Male

DRUGS (2)
  1. BALVERSA [Suspect]
     Active Substance: ERDAFITINIB
     Indication: Product used for unknown indication
     Dosage: 2 TABLETS  EVERY OTHER DAY
     Route: 048
  2. BALVERSA [Suspect]
     Active Substance: ERDAFITINIB
     Dosage: TAKE 3 TABLETS  EVERY OTHER DAY
     Route: 048

REACTIONS (1)
  - Death [Fatal]
